FAERS Safety Report 19132245 (Version 1)
Quarter: 2021Q2

REPORT INFORMATION
  Report Type: Spontaneous
  Country: US (occurrence: US)
  Receive Date: 20210413
  Receipt Date: 20210413
  Transmission Date: 20210717
  Serious: Yes (Other)
  Sender: FDA-Public Use
  Company Number: US-TEVA-2021-US-1899005

PATIENT
  Sex: Male

DRUGS (6)
  1. VENLAFAXINE [Suspect]
     Active Substance: VENLAFAXINE HYDROCHLORIDE
     Indication: DIABETIC NEUROPATHY
     Dosage: TAKING SINCE APPROXIMATELY 2016 OR 2018 (FOR 3 TO 5 YEARS)
     Route: 065
  2. VENLAFAXINE [Suspect]
     Active Substance: VENLAFAXINE HYDROCHLORIDE
     Route: 065
  3. WARFARIN [Concomitant]
     Active Substance: WARFARIN
     Dosage: FROM APPROXIMATELY 2001 OR 2016 TO JANUARY 2021
     Dates: end: 202101
  4. BABY ASPIRIN [Concomitant]
     Active Substance: ASPIRIN
     Dosage: STOPPED IN JANUARY OR FEBRUARY 2021
     Dates: end: 2021
  5. CLOPIDOGREL [Concomitant]
     Active Substance: CLOPIDOGREL BISULFATE
     Dosage: STOPPED IN JANUARY OR FEBRUARY 2021
     Dates: end: 2021
  6. ELIQUIS [Concomitant]
     Active Substance: APIXABAN
     Dates: start: 202102

REACTIONS (10)
  - Gastric haemorrhage [Unknown]
  - Contusion [Recovered/Resolved]
  - Pruritus [Unknown]
  - Thrombosis [Unknown]
  - Off label use [Unknown]
  - Product use in unapproved indication [Unknown]
  - Asthenia [Unknown]
  - Fatigue [Unknown]
  - Haematemesis [Unknown]
  - Pharyngeal haemorrhage [Unknown]

NARRATIVE: CASE EVENT DATE: 202101
